FAERS Safety Report 10279217 (Version 1)
Quarter: 2014Q3

REPORT INFORMATION
  Report Type: Spontaneous
  Country: US (occurrence: US)
  Receive Date: 20140707
  Receipt Date: 20140707
  Transmission Date: 20150326
  Serious: Yes (Disabling)
  Sender: FDA-Public Use
  Company Number: US-009507513-1407USA001698

PATIENT
  Age: 75 Year
  Sex: Female

DRUGS (5)
  1. SINEMET [Suspect]
     Active Substance: CARBIDOPA\LEVODOPA
     Dosage: 1.5 TABLETS EVERY 4H
     Route: 048
  2. SINEMET [Suspect]
     Active Substance: CARBIDOPA\LEVODOPA
     Dosage: PREOPERATIVE EQUIVALENT DOSE WAS 1200
     Route: 048
  3. SINEMET [Suspect]
     Active Substance: CARBIDOPA\LEVODOPA
     Dosage: POSTOPERATIVE EQUIVALENT DOSE WAS 1200
     Route: 048
  4. ROPINIROLE. [Concomitant]
     Active Substance: ROPINIROLE
     Indication: PARKINSON^S DISEASE
     Dosage: 1MG THREE TIMES A DAY
  5. SINEMET [Suspect]
     Active Substance: CARBIDOPA\LEVODOPA
     Indication: PARKINSON^S DISEASE
     Dosage: INCREASE THE DOSE(UNSPECIFIED)
     Route: 048

REACTIONS (3)
  - Syncope [Recovered/Resolved]
  - Dyskinesia [Not Recovered/Not Resolved]
  - Orthostatic hypotension [Unknown]
